FAERS Safety Report 21976203 (Version 1)
Quarter: 2023Q1

REPORT INFORMATION
  Report Type: Spontaneous
  Country: GB (occurrence: GB)
  Receive Date: 20230210
  Receipt Date: 20230210
  Transmission Date: 20230417
  Serious: Yes (Death)
  Sender: FDA-Public Use
  Company Number: GB-MHRA-ADR 27245160

PATIENT
  Age: 59 Year
  Sex: Male
  Weight: 62 kg

DRUGS (62)
  1. TRASTUZUMAB [Suspect]
     Active Substance: TRASTUZUMAB
     Indication: Product used for unknown indication
     Route: 065
     Dates: start: 20150930
  2. TRASTUZUMAB [Suspect]
     Active Substance: TRASTUZUMAB
     Route: 065
  3. TRASTUZUMAB [Suspect]
     Active Substance: TRASTUZUMAB
     Route: 065
  4. PERTUZUMAB [Suspect]
     Active Substance: PERTUZUMAB
     Indication: Product used for unknown indication
     Route: 065
  5. PERTUZUMAB [Suspect]
     Active Substance: PERTUZUMAB
     Route: 065
  6. ARIPIPRAZOLE [Suspect]
     Active Substance: ARIPIPRAZOLE
     Indication: Schizophrenia
     Route: 065
  7. ARIPIPRAZOLE [Suspect]
     Active Substance: ARIPIPRAZOLE
     Dosage: 245
     Route: 065
  8. ARIPIPRAZOLE [Suspect]
     Active Substance: ARIPIPRAZOLE
     Dosage: 245
     Route: 065
  9. CHLORPROMAZINE [Suspect]
     Active Substance: CHLORPROMAZINE
     Indication: Schizophrenia
     Route: 065
  10. ZUCLOPENTHIXOL [Suspect]
     Active Substance: ZUCLOPENTHIXOL
     Indication: Schizophrenia
     Route: 030
     Dates: start: 20091009
  11. ZUCLOPENTHIXOL [Suspect]
     Active Substance: ZUCLOPENTHIXOL
     Route: 030
     Dates: start: 20040217, end: 20040601
  12. ZUCLOPENTHIXOL [Suspect]
     Active Substance: ZUCLOPENTHIXOL
     Route: 030
     Dates: start: 20041018, end: 20041018
  13. ZUCLOPENTHIXOL [Suspect]
     Active Substance: ZUCLOPENTHIXOL
     Route: 030
     Dates: start: 20091018
  14. ZUCLOPENTHIXOL [Suspect]
     Active Substance: ZUCLOPENTHIXOL
     Route: 030
     Dates: start: 20040601, end: 20041018
  15. ZUCLOPENTHIXOL [Suspect]
     Active Substance: ZUCLOPENTHIXOL
     Route: 030
     Dates: start: 20030204, end: 20040217
  16. ZUCLOPENTHIXOL [Suspect]
     Active Substance: ZUCLOPENTHIXOL
     Route: 048
     Dates: start: 20201207
  17. ZUCLOPENTHIXOL [Suspect]
     Active Substance: ZUCLOPENTHIXOL
     Route: 048
     Dates: start: 2011
  18. ZUCLOPENTHIXOL [Suspect]
     Active Substance: ZUCLOPENTHIXOL
     Route: 048
     Dates: start: 20191209, end: 20191223
  19. ZUCLOPENTHIXOL [Suspect]
     Active Substance: ZUCLOPENTHIXOL
     Route: 048
     Dates: start: 20100823
  20. ZUCLOPENTHIXOL [Suspect]
     Active Substance: ZUCLOPENTHIXOL
     Route: 048
     Dates: start: 20191223, end: 20191223
  21. ZUCLOPENTHIXOL [Suspect]
     Active Substance: ZUCLOPENTHIXOL
     Route: 048
     Dates: start: 20191209, end: 20191223
  22. ZUCLOPENTHIXOL [Suspect]
     Active Substance: ZUCLOPENTHIXOL
     Route: 048
     Dates: start: 20191223, end: 20191223
  23. ZUCLOPENTHIXOL [Suspect]
     Active Substance: ZUCLOPENTHIXOL
     Route: 048
     Dates: start: 20191209, end: 20191223
  24. ZUCLOPENTHIXOL [Suspect]
     Active Substance: ZUCLOPENTHIXOL
     Route: 048
  25. ZUCLOPENTHIXOL [Suspect]
     Active Substance: ZUCLOPENTHIXOL
     Route: 048
  26. ZUCLOPENTHIXOL [Suspect]
     Active Substance: ZUCLOPENTHIXOL
     Route: 048
     Dates: start: 20191209, end: 20191223
  27. ZUCLOPENTHIXOL [Suspect]
     Active Substance: ZUCLOPENTHIXOL
     Route: 048
     Dates: start: 20191209, end: 20191223
  28. ZUCLOPENTHIXOL [Suspect]
     Active Substance: ZUCLOPENTHIXOL
     Route: 048
     Dates: start: 20200521, end: 2020
  29. ZUCLOPENTHIXOL [Suspect]
     Active Substance: ZUCLOPENTHIXOL
     Route: 048
  30. ZUCLOPENTHIXOL [Suspect]
     Active Substance: ZUCLOPENTHIXOL
     Route: 048
  31. ZUCLOPENTHIXOL [Suspect]
     Active Substance: ZUCLOPENTHIXOL
     Route: 048
  32. DOCETAXEL [Suspect]
     Active Substance: DOCETAXEL
     Indication: Product used for unknown indication
     Route: 065
  33. HALOPERIDOL [Suspect]
     Active Substance: HALOPERIDOL
     Indication: Schizophrenia
     Route: 065
  34. HALOPERIDOL [Suspect]
     Active Substance: HALOPERIDOL
     Route: 065
  35. HALOPERIDOL [Suspect]
     Active Substance: HALOPERIDOL
     Route: 065
  36. HALOPERIDOL [Suspect]
     Active Substance: HALOPERIDOL
     Route: 065
  37. HALOPERIDOL [Suspect]
     Active Substance: HALOPERIDOL
     Route: 065
  38. LITHIUM [Suspect]
     Active Substance: LITHIUM
     Indication: Product used for unknown indication
     Route: 065
  39. LITHIUM [Suspect]
     Active Substance: LITHIUM
     Route: 065
  40. LITHIUM [Suspect]
     Active Substance: LITHIUM
     Route: 065
  41. LORAZEPAM [Suspect]
     Active Substance: LORAZEPAM
     Indication: Schizophrenia
     Route: 048
  42. OLANZAPINE [Suspect]
     Active Substance: OLANZAPINE
     Indication: Schizophrenia
     Route: 065
  43. OLANZAPINE [Suspect]
     Active Substance: OLANZAPINE
     Route: 065
     Dates: start: 20060704
  44. OLANZAPINE [Suspect]
     Active Substance: OLANZAPINE
     Route: 065
  45. OLANZAPINE [Suspect]
     Active Substance: OLANZAPINE
     Route: 065
  46. OLANZAPINE [Suspect]
     Active Substance: OLANZAPINE
     Route: 065
     Dates: start: 20040217
  47. OLANZAPINE [Suspect]
     Active Substance: OLANZAPINE
     Route: 065
     Dates: start: 20080823
  48. RISPERDAL [Suspect]
     Active Substance: RISPERIDONE
     Indication: Schizophrenia
     Route: 048
  49. RISPERDAL [Suspect]
     Active Substance: RISPERIDONE
     Route: 048
  50. RISPERDAL [Suspect]
     Active Substance: RISPERIDONE
     Route: 048
  51. RISPERDAL [Suspect]
     Active Substance: RISPERIDONE
     Route: 048
  52. RISPERDAL [Suspect]
     Active Substance: RISPERIDONE
     Route: 048
  53. RISPERDAL [Suspect]
     Active Substance: RISPERIDONE
     Route: 048
  54. CALCIUM\CHOLECALCIFEROL [Concomitant]
     Active Substance: CALCIUM\CHOLECALCIFEROL
     Dates: start: 20091018
  55. CHLORPHENIRAMINE MALEATE [Concomitant]
     Active Substance: CHLORPHENIRAMINE MALEATE
  56. AMOXICILLIN\CLAVULANATE POTASSIUM [Concomitant]
     Active Substance: AMOXICILLIN\CLAVULANATE POTASSIUM
     Dates: start: 20151122, end: 20151125
  57. DENOSUMAB [Concomitant]
     Active Substance: DENOSUMAB
     Dates: start: 20150930
  58. DENOSUMAB [Concomitant]
     Active Substance: DENOSUMAB
     Dates: start: 20150930
  59. DULOXETINE [Concomitant]
     Active Substance: DULOXETINE
  60. GENTAMICIN [Concomitant]
     Active Substance: GENTAMICIN
  61. LEVOFLOXACIN [Concomitant]
     Active Substance: LEVOFLOXACIN
     Indication: Febrile neutropenia
     Dates: start: 20151125
  62. MIRTAZAPINE [Concomitant]
     Active Substance: MIRTAZAPINE
     Dates: start: 201510

REACTIONS (27)
  - Schizophrenia [Fatal]
  - Delusion of grandeur [Fatal]
  - Lymphocyte count decreased [Fatal]
  - Platelet count decreased [Fatal]
  - Fatigue [Fatal]
  - Diarrhoea [Fatal]
  - Cellulitis [Fatal]
  - Seizure [Fatal]
  - Neutrophil count increased [Fatal]
  - Neuropathy peripheral [Fatal]
  - Mucosal inflammation [Fatal]
  - Psychotic disorder [Fatal]
  - Neoplasm progression [Fatal]
  - Neutropenia [Fatal]
  - Nausea [Fatal]
  - Rhinalgia [Fatal]
  - Hallucination, auditory [Fatal]
  - COVID-19 [Fatal]
  - SARS-CoV-2 test positive [Fatal]
  - Dyspepsia [Fatal]
  - Alopecia [Fatal]
  - Extrapyramidal disorder [Fatal]
  - Leukopenia [Fatal]
  - Fatigue [Fatal]
  - Affective disorder [Fatal]
  - Incorrect dose administered [Fatal]
  - Off label use [Fatal]

NARRATIVE: CASE EVENT DATE: 20151101
